FAERS Safety Report 10475274 (Version 1)
Quarter: 2014Q3

REPORT INFORMATION
  Report Type: Spontaneous
  Country: US (occurrence: US)
  Receive Date: 20140925
  Receipt Date: 20140925
  Transmission Date: 20150326
  Serious: Yes (Other)
  Sender: FDA-Public Use
  Company Number: PHHY2014US124294

PATIENT
  Age: 62 Year
  Sex: Female

DRUGS (10)
  1. 5-FLUOROURACIL [Suspect]
     Active Substance: FLUOROURACIL
     Indication: COLON CANCER
  2. IRINOTECAN [Suspect]
     Active Substance: IRINOTECAN
     Indication: COLON CANCER
  3. CISPLATIN. [Suspect]
     Active Substance: CISPLATIN
     Indication: COLON CANCER
  4. METHOTREXATE [Suspect]
     Active Substance: METHOTREXATE
     Indication: COLON CANCER
  5. BEVACIZUMAB [Suspect]
     Active Substance: BEVACIZUMAB
     Indication: COLON CANCER
     Dosage: 150-450 MG, UNK
  6. PANITUMUMAB [Suspect]
     Active Substance: PANITUMUMAB
     Indication: COLON CANCER
  7. DACARBAZINE. [Suspect]
     Active Substance: DACARBAZINE
     Indication: COLON CANCER
  8. STREPTOZOCIN [Suspect]
     Active Substance: STREPTOZOCIN
     Indication: COLON CANCER
  9. ZOLEDRONATE [Suspect]
     Active Substance: ZOLEDRONIC ACID
     Indication: COLON CANCER
  10. CAPECITABINE [Suspect]
     Active Substance: CAPECITABINE
     Indication: COLON CANCER

REACTIONS (9)
  - Hypertension [Recovered/Resolved]
  - Nephropathy [Unknown]
  - Haematuria [Unknown]
  - Anaemia [Recovered/Resolved]
  - Thrombocytopenia [Unknown]
  - Renal impairment [Recovered/Resolved]
  - Proteinuria [Recovering/Resolving]
  - Renal failure acute [Unknown]
  - Renal ischaemia [Unknown]
